FAERS Safety Report 6087657-7 (Version None)
Quarter: 2009Q1

REPORT INFORMATION
  Report Type: 
  Country: None (occurrence: None)
  Receive Date: 20090223
  Receipt Date: 20090219
  Transmission Date: 20090719
  Serious: Yes (Death, Hospitalization)
  Sender: FDA-Public Use
  Company Number: JP-BRISTOL-MYERS SQUIBB COMPANY-14104038

PATIENT
  Age: 58 Year
  Sex: Male

DRUGS (3)
  1. PACLITAXEL [Suspect]
     Indication: GASTRIC CANCER
     Dosage: LAST ADMINISTERED DATE-28FEB08
     Dates: start: 20071127
  2. LAPATINIB [Suspect]
     Indication: GASTRIC CANCER
     Dates: start: 20071128, end: 20080301
  3. DECADRON [Suspect]

REACTIONS (1)
  - PNEUMONIA [None]
